FAERS Safety Report 25173741 (Version 1)
Quarter: 2025Q2

REPORT INFORMATION
  Report Type: Spontaneous
  Country: US (occurrence: US)
  Receive Date: 20250408
  Receipt Date: 20250408
  Transmission Date: 20250716
  Serious: No
  Sender: SANDOZ
  Company Number: US-SANDOZ-SDZ2025US021189

PATIENT
  Sex: Female

DRUGS (8)
  1. BENADRYL [Suspect]
     Active Substance: DIPHENHYDRAMINE HYDROCHLORIDE
     Indication: Gastrooesophageal reflux disease
     Route: 065
  2. CARAFATE [Suspect]
     Active Substance: SUCRALFATE
     Indication: Gastrooesophageal reflux disease
     Route: 065
  3. KESIMPTA [Suspect]
     Active Substance: OFATUMUMAB
     Indication: Product used for unknown indication
     Route: 065
  4. KESIMPTA [Suspect]
     Active Substance: OFATUMUMAB
     Route: 065
  5. KESIMPTA [Suspect]
     Active Substance: OFATUMUMAB
     Route: 065
  6. KESIMPTA [Suspect]
     Active Substance: OFATUMUMAB
     Route: 065
  7. OMEPRAZOLE [Suspect]
     Active Substance: OMEPRAZOLE
     Indication: Gastrooesophageal reflux disease
     Route: 065
  8. PEPCID AC [Suspect]
     Active Substance: FAMOTIDINE
     Indication: Gastrooesophageal reflux disease
     Route: 065

REACTIONS (1)
  - Dysphonia [Not Recovered/Not Resolved]
